FAERS Safety Report 25426452 (Version 6)
Quarter: 2025Q3

REPORT INFORMATION
  Report Type: Spontaneous
  Country: JP (occurrence: JP)
  Receive Date: 20250612
  Receipt Date: 20250826
  Transmission Date: 20251020
  Serious: Yes (Other)
  Sender: JOHNSON AND JOHNSON
  Company Number: JP-JNJFOC-20250611098

PATIENT
  Age: 8 Decade
  Sex: Female

DRUGS (1)
  1. RYBREVANT [Suspect]
     Active Substance: AMIVANTAMAB-VMJW
     Indication: EGFR gene mutation
     Route: 041
     Dates: start: 20250528, end: 2025

REACTIONS (7)
  - Colitis [Recovered/Resolved]
  - Intestinal ulcer [Recovered/Resolved]
  - Laryngitis [Recovered/Resolved]
  - Nasal inflammation [Recovered/Resolved]
  - Gastroenteritis [Recovered/Resolved]
  - Physical deconditioning [Unknown]
  - Off label use [Unknown]

NARRATIVE: CASE EVENT DATE: 20250101
